FAERS Safety Report 14358661 (Version 2)
Quarter: 2018Q2

REPORT INFORMATION
  Report Type: Spontaneous
  Country: US (occurrence: US)
  Receive Date: 20180105
  Receipt Date: 20180404
  Transmission Date: 20180711
  Serious: No
  Sender: FDA-Public Use
  Company Number: US-SA-2017SA244092

PATIENT
  Age: 48 Year
  Sex: Female
  Weight: 65.77 kg

DRUGS (28)
  1. HYDROCODONE [Concomitant]
     Active Substance: HYDROCODONE
     Dosage: 10/325 MG
     Route: 065
  2. CELEXA [Concomitant]
     Active Substance: CITALOPRAM HYDROBROMIDE
  3. PENICILLIN [Concomitant]
     Active Substance: PENICILLIN
  4. GABAPENTIN. [Concomitant]
     Active Substance: GABAPENTIN
     Route: 065
  5. ATENOLOL. [Concomitant]
     Active Substance: ATENOLOL
     Indication: HEART RATE INCREASED
     Route: 065
  6. SULFONAMIDES [Concomitant]
     Active Substance: UNSPECIFIED INGREDIENT
  7. RANITIDINE. [Concomitant]
     Active Substance: RANITIDINE
     Indication: GASTROOESOPHAGEAL REFLUX DISEASE
     Route: 065
  8. BUSPAR [Concomitant]
     Active Substance: BUSPIRONE HYDROCHLORIDE
     Indication: DEPRESSION
     Route: 065
  9. HYDROXYCHLOROQUINE [Concomitant]
     Active Substance: HYDROXYCHLOROQUINE
     Route: 065
  10. CETIRIZINE HYDROCHLORIDE. [Concomitant]
     Active Substance: CETIRIZINE HYDROCHLORIDE
     Route: 065
  11. ASPIRIN. [Concomitant]
     Active Substance: ASPIRIN
  12. CEFTIN [Concomitant]
     Active Substance: CEFUROXIME AXETIL
  13. FLEXERIL [Concomitant]
     Active Substance: CYCLOBENZAPRINE HYDROCHLORIDE
  14. IBUPROFEN. [Concomitant]
     Active Substance: IBUPROFEN
  15. PROZAC [Concomitant]
     Active Substance: FLUOXETINE HYDROCHLORIDE
  16. DUPIXENT [Suspect]
     Active Substance: DUPILUMAB
     Indication: DERMATITIS ATOPIC
     Route: 058
     Dates: start: 20171121, end: 20171121
  17. OMEPRAZOLE. [Concomitant]
     Active Substance: OMEPRAZOLE
     Indication: GASTROOESOPHAGEAL REFLUX DISEASE
     Route: 065
  18. LEXAPRO [Concomitant]
     Active Substance: ESCITALOPRAM OXALATE
  19. MORPHINE [Concomitant]
     Active Substance: MORPHINE
  20. SEROQUEL [Concomitant]
     Active Substance: QUETIAPINE FUMARATE
  21. DUPIXENT [Suspect]
     Active Substance: DUPILUMAB
     Indication: ECZEMA
     Route: 058
     Dates: start: 20171121, end: 20171121
  22. DUPIXENT [Suspect]
     Active Substance: DUPILUMAB
     Indication: ECZEMA
     Route: 058
     Dates: start: 20171205
  23. PHENERGAN [Concomitant]
     Active Substance: PROMETHAZINE HYDROCHLORIDE
  24. VENLAFAXINE [Concomitant]
     Active Substance: VENLAFAXINE HYDROCHLORIDE
     Indication: DEPRESSION
     Route: 065
  25. BIAXIN [Concomitant]
     Active Substance: CLARITHROMYCIN
  26. THORAZINE [Concomitant]
     Active Substance: CHLORPROMAZINE
  27. DUPIXENT [Suspect]
     Active Substance: DUPILUMAB
     Indication: DERMATITIS ATOPIC
     Route: 058
     Dates: start: 20171205
  28. UNASYN [Concomitant]
     Active Substance: AMPICILLIN SODIUM\SULBACTAM SODIUM

REACTIONS (3)
  - Nausea [Recovering/Resolving]
  - Dermatitis [Unknown]
  - Headache [Not Recovered/Not Resolved]

NARRATIVE: CASE EVENT DATE: 20171121
